FAERS Safety Report 20985780 (Version 1)
Quarter: 2022Q2

REPORT INFORMATION
  Report Type: Spontaneous
  Country: US (occurrence: None)
  Receive Date: 20220617
  Receipt Date: 20220617
  Transmission Date: 20220721
  Serious: Yes (Hospitalization)
  Sender: FDA-Public Use
  Company Number: None

PATIENT
  Age: 86 Year
  Sex: Female
  Weight: 63.5 kg

DRUGS (11)
  1. BEBTELOVIMAB [Suspect]
     Active Substance: BEBTELOVIMAB
     Indication: SARS-CoV-2 test positive
     Dosage: FREQUENCY : ONCE;?
     Route: 040
  2. FLECAINIDE [Concomitant]
     Active Substance: FLECAINIDE
     Dates: start: 20180318
  3. WARFARIN [Concomitant]
     Active Substance: WARFARIN
     Dates: start: 20190624
  4. SPIRONOLACTONE [Concomitant]
     Active Substance: SPIRONOLACTONE
     Dates: start: 20200512
  5. ATORVASTATIN [Concomitant]
     Active Substance: ATORVASTATIN
     Dates: start: 20180601
  6. BUMETANIDE [Concomitant]
     Active Substance: BUMETANIDE
     Dates: start: 20200512
  7. CARVEDILOL [Concomitant]
     Active Substance: CARVEDILOL
     Dates: start: 20180131
  8. DIAZEPAM [Concomitant]
     Active Substance: DIAZEPAM
     Dates: start: 20210714
  9. MELOXICAM [Concomitant]
     Active Substance: MELOXICAM
     Dates: start: 20190411
  10. PRAMIPEXOLE [Concomitant]
     Active Substance: PRAMIPEXOLE
     Dates: start: 20210714
  11. PANTOPRAZOLE [Concomitant]
     Active Substance: PANTOPRAZOLE
     Dates: start: 20181025

REACTIONS (9)
  - Hypopnoea [None]
  - Blood pressure increased [None]
  - Heart rate increased [None]
  - Oxygen saturation decreased [None]
  - Erythema [None]
  - Flushing [None]
  - Pallor [None]
  - Dyspnoea [None]
  - Speech disorder [None]

NARRATIVE: CASE EVENT DATE: 20220617
